FAERS Safety Report 25654097 (Version 1)
Quarter: 2025Q3

REPORT INFORMATION
  Report Type: Report from Study
  Country: US (occurrence: US)
  Receive Date: 20250807
  Receipt Date: 20250807
  Transmission Date: 20251021
  Serious: Yes (Other)
  Sender: ALEXION PHARMACEUTICALS
  Company Number: US-ASTRAZENECA-202507USA029084US

PATIENT
  Age: 62 Year
  Sex: Female

DRUGS (2)
  1. STRENSIQ [Suspect]
     Active Substance: ASFOTASE ALFA
     Indication: Phosphorus metabolism disorder
     Dosage: 2 MILLIGRAM/KILOGRAM, TIW
     Route: 065
  2. TAXOL [Suspect]
     Active Substance: PACLITAXEL
     Route: 065

REACTIONS (12)
  - Breast cancer [Unknown]
  - Oxygen saturation decreased [Unknown]
  - Skin discolouration [Unknown]
  - Alopecia [Unknown]
  - Fatigue [Unknown]
  - Pain [Unknown]
  - Musculoskeletal stiffness [Recovered/Resolved]
  - Arthralgia [Unknown]
  - Muscular weakness [Unknown]
  - Headache [Unknown]
  - Insomnia [Unknown]
  - Decreased appetite [Unknown]
